FAERS Safety Report 6581213-X (Version None)
Quarter: 2010Q1

REPORT INFORMATION
  Report Type: 
  Country: None (occurrence: None)
  Receive Date: 20100203
  Receipt Date: 20100119
  Transmission Date: 20100710
  Serious: Yes (Death, Other)
  Sender: FDA-Public Use
  Company Number: 2010S1000457

PATIENT
  Age: 83 Year
  Sex: Female

DRUGS (6)
  1. PHOSPHOSODA FLAVOR NOT SPECIFIED [Suspect]
     Indication: COLONOSCOPY
     Dosage: PO
     Route: 048
     Dates: start: 20021028
  2. LASIX [Concomitant]
  3. IMDUR [Concomitant]
  4. VERAPAMIL [Concomitant]
  5. K-DUR [Concomitant]
  6. PEPCID [Concomitant]

REACTIONS (3)
  - DIALYSIS [None]
  - RENAL CYST [None]
  - RENAL FAILURE [None]
